FAERS Safety Report 8173027-4 (Version None)
Quarter: 2012Q1

REPORT INFORMATION
  Report Type: 
  Country: None (occurrence: None)
  Receive Date: 20120229
  Receipt Date: 20120224
  Transmission Date: 20120608
  Serious: Yes (Other)
  Sender: FDA-Public Use
  Company Number: ZA-JNJFOC-20120210003

PATIENT
  Sex: Female

DRUGS (1)
  1. COOL MINT LISTERINE [Suspect]
     Indication: BREATH ODOUR
     Route: 048
     Dates: start: 20120201, end: 20120211

REACTIONS (7)
  - ORAL PAIN [None]
  - MOUTH ULCERATION [None]
  - TONGUE ULCERATION [None]
  - DYSPHAGIA [None]
  - ORAL DISCOMFORT [None]
  - HYPOGEUSIA [None]
  - ORAL MUCOSAL EXFOLIATION [None]
